FAERS Safety Report 5067417-6 (Version None)
Quarter: 2006Q3

REPORT INFORMATION
  Report Type: 
  Country: None (occurrence: None)
  Receive Date: 20060726
  Receipt Date: 20060719
  Transmission Date: 20061208
  Serious: Yes (Hospitalization)
  Sender: FDA-Public Use
  Company Number: 200610673BFR

PATIENT
  Age: 54 Year
  Sex: Male
  Weight: 75 kg

DRUGS (8)
  1. SORAFENIB [Suspect]
     Indication: RENAL CELL CARCINOMA STAGE UNSPECIFIED
     Dosage: 400 MG, BID, ORAL
     Route: 048
     Dates: start: 20060321, end: 20060719
  2. BRICANYL [Concomitant]
  3. ATROVENT [Concomitant]
  4. SOLUPRED [PREDNISOLONE] [Concomitant]
  5. LASILIX [Concomitant]
  6. MORPHINE SULFATE [Concomitant]
  7. NEXIUM [Concomitant]
  8. SKENAN [Concomitant]

REACTIONS (4)
  - DYSPNOEA [None]
  - LUNG INFILTRATION [None]
  - NEOPLASM PROGRESSION [None]
  - PULMONARY HYPERTENSION [None]
